FAERS Safety Report 5000132-3 (Version None)
Quarter: 2006Q2

REPORT INFORMATION
  Report Type: 
  Country: None (occurrence: None)
  Receive Date: 20060509
  Receipt Date: 20060424
  Transmission Date: 20061013
  Serious: Yes (Hospitalization, Other)
  Sender: FDA-Public Use
  Company Number: GB200604003736

PATIENT
  Age: 27 Year
  Sex: Female

DRUGS (1)
  1. FLUOXETINE (FLUOXETINE HYDROCHLORIDE UNKNOWN MANUFACTURER) UNKNOWN [Suspect]
     Indication: DEPRESSION
     Dosage: 20 MG, DAILY (1/D), ORAL
     Route: 048
     Dates: end: 20060402

REACTIONS (4)
  - ALCOHOL INTERACTION [None]
  - ALCOHOL USE [None]
  - CONVULSION [None]
  - DRUG INTERACTION [None]
